FAERS Safety Report 4443189-0 (Version None)
Quarter: 2004Q3

REPORT INFORMATION
  Report Type: 
  Country: None (occurrence: None)
  Receive Date: 20040907
  Receipt Date: 20040907
  Transmission Date: 20050211
  Serious: Yes (Life-Threatening, Hospitalization)
  Sender: FDA-Public Use
  Company Number: None

PATIENT
  Age: 45 Year
  Sex: Male
  Weight: 90.7194 kg

DRUGS (3)
  1. INFLIXIMAB [Suspect]
     Indication: COLITIS ULCERATIVE
     Dosage: 100MG  Q 8 WEEKS  INTRAVENOUS
     Route: 042
     Dates: start: 20030423, end: 20030528
  2. MERCAPTOPURINE [Suspect]
     Dosage: 50MG  QD  ORAL
     Route: 048
     Dates: start: 20030423, end: 20030528
  3. WARFARIN SODIUM [Concomitant]

REACTIONS (3)
  - HAEMOGLOBIN DECREASED [None]
  - NEUTROPENIA [None]
  - PLATELET COUNT DECREASED [None]
